FAERS Safety Report 6673300-2 (Version None)
Quarter: 2010Q2

REPORT INFORMATION
  Report Type: 
  Country: None (occurrence: None)
  Receive Date: 20100408
  Receipt Date: 20100325
  Transmission Date: 20101027
  Serious: Yes (Other)
  Sender: FDA-Public Use
  Company Number: GB-MYLANLABS-2010S1005115

PATIENT
  Age: 68 Year
  Sex: Male

DRUGS (4)
  1. ROPINIROLE [Suspect]
     Indication: PARKINSON'S DISEASE
     Route: 048
     Dates: start: 20090401, end: 20091126
  2. COD LIVER OIL [Concomitant]
     Indication: ARTHRALGIA
     Route: 048
  3. ESCITALOPRAM [Concomitant]
     Indication: DEPRESSION
     Route: 048
  4. SINEMET [Concomitant]
     Indication: PARKINSON'S DISEASE
     Route: 048

REACTIONS (7)
  - BLOOD PRESSURE FLUCTUATION [None]
  - CONFUSIONAL STATE [None]
  - EMOTIONAL DISTRESS [None]
  - ERECTION INCREASED [None]
  - HOT FLUSH [None]
  - LIBIDO INCREASED [None]
  - POOR QUALITY SLEEP [None]
